FAERS Safety Report 23266927 (Version 1)
Quarter: 2023Q4

REPORT INFORMATION
  Report Type: Spontaneous
  Country: US (occurrence: US)
  Receive Date: 20231206
  Receipt Date: 20231206
  Transmission Date: 20240109
  Serious: Yes (Hospitalization)
  Sender: FDA-Public Use
  Company Number: US-PARATEK PHARMACEUTICALS, INC.-2023PTK00649

PATIENT
  Age: 80 Year
  Sex: Male

DRUGS (5)
  1. NUZYRA [Suspect]
     Active Substance: OMADACYCLINE
     Indication: Skin infection
     Dosage: 300 MG, 1X/DAY
     Route: 048
     Dates: start: 202311, end: 202311
  2. NUZYRA [Suspect]
     Active Substance: OMADACYCLINE
     Indication: Osteomyelitis
  3. DOXYCYCLINE [Concomitant]
     Active Substance: DOXYCYCLINE
     Dosage: UNK
  4. UNSPECIFIED INGREDIENT [Concomitant]
     Active Substance: UNSPECIFIED INGREDIENT
     Route: 042
  5. UNSPECIFIED INGREDIENT [Concomitant]
     Active Substance: UNSPECIFIED INGREDIENT

REACTIONS (2)
  - Seizure [Recovered/Resolved]
  - Incorrect dose administered [Recovered/Resolved]

NARRATIVE: CASE EVENT DATE: 20231101
